FAERS Safety Report 8902520 (Version 3)
Quarter: 2012Q4

REPORT INFORMATION
  Report Type: 
  Country: PT (occurrence: PT)
  Receive Date: 20121112
  Receipt Date: 20121130
  Transmission Date: 20130627
  Serious: Yes (Other)
  Sender: FDA-Public Use
  Company Number: PT-PFIZER INC-2012280558

PATIENT
  Age: 38 Year
  Sex: Female
  Weight: 62 kg

DRUGS (5)
  1. LYRICA [Suspect]
     Indication: ANXIETY
     Dosage: 100 mg, 2x/day
     Route: 048
     Dates: start: 20120726, end: 20120818
  2. REBIF [Concomitant]
     Dosage: 44, 3x/week
     Route: 058
     Dates: start: 200501
  3. ZANIPRESS [Concomitant]
     Dosage: 30 mg, 1x/day, 20mg + 10mg
     Route: 048
  4. PITAVASTATIN [Concomitant]
     Dosage: 2 mg, 1x/day
     Route: 048
  5. VICTAN [Concomitant]
     Indication: ANXIETY
     Dosage: UNK
     Route: 048

REACTIONS (2)
  - Tachyarrhythmia [Recovered/Resolved]
  - Dyspnoea [Recovered/Resolved]
